FAERS Safety Report 6178584-5 (Version None)
Quarter: 2009Q2

REPORT INFORMATION
  Report Type: 
  Country: None (occurrence: None)
  Receive Date: 20090504
  Receipt Date: 20080821
  Transmission Date: 20091009
  Serious: No
  Sender: FDA-Public Use
  Company Number: US-ALEXION-A200800203

PATIENT

DRUGS (9)
  1. SOLIRIS [Suspect]
     Indication: PAROXYSMAL NOCTURNAL HAEMOGLOBINURIA
     Dosage: 600 MG, SINGLE
     Route: 042
     Dates: start: 20071030, end: 20071030
  2. SOLIRIS [Suspect]
     Dosage: 900 MG, SINGLE
     Route: 042
     Dates: start: 20080808, end: 20080808
  3. SOLIRIS [Suspect]
     Dosage: 900 MG, SINGLE
     Route: 042
     Dates: start: 20080822, end: 20080822
  4. SOLIRIS [Suspect]
     Dosage: 900 MG, SINGLE
     Route: 042
     Dates: start: 20080905, end: 20080905
  5. SOLIRIS [Suspect]
     Dosage: 900 MG, SINGLE
     Route: 042
     Dates: start: 20080919, end: 20080919
  6. FOLIC ACID [Concomitant]
     Indication: PAROXYSMAL NOCTURNAL HAEMOGLOBINURIA
     Dosage: UNK, BID
  7. IRON [Concomitant]
     Indication: PAROXYSMAL NOCTURNAL HAEMOGLOBINURIA
     Dosage: UNK, BID
  8. TYLENOL (CAPLET) [Concomitant]
     Indication: PREMEDICATION
  9. BENADRYL [Concomitant]
     Indication: PREMEDICATION

REACTIONS (2)
  - FATIGUE [None]
  - IMPAIRED HEALING [None]
